FAERS Safety Report 15102062 (Version 1)
Quarter: 2018Q3

REPORT INFORMATION
  Report Type: Spontaneous
  Country: CN (occurrence: CN)
  Receive Date: 20180703
  Receipt Date: 20180703
  Transmission Date: 20181010
  Serious: Yes (Hospitalization)
  Sender: FDA-Public Use
  Company Number: CN-LANNETT COMPANY, INC.-CN-2018LAN000779

PATIENT
  Age: 36 Year
  Sex: Male

DRUGS (6)
  1. RIFAMPIN. [Concomitant]
     Active Substance: RIFAMPIN
     Indication: PULMONARY TUBERCULOSIS
     Dosage: 450 MG, QD
     Route: 065
  2. ETHAMBUTOL [Suspect]
     Active Substance: ETHAMBUTOL HYDROCHLORIDE
     Dosage: 15 MG/KG BODY WEIGHT/DAY
     Route: 065
  3. ISONIAZID. [Suspect]
     Active Substance: ISONIAZID
     Indication: PULMONARY TUBERCULOSIS
     Dosage: 200 MG, QD
     Route: 065
  4. RIFAPENTINE [Concomitant]
     Active Substance: RIFAPENTINE
     Indication: PULMONARY TUBERCULOSIS
     Dosage: 600 MG, PER WEEK
  5. ETHAMBUTOL [Suspect]
     Active Substance: ETHAMBUTOL HYDROCHLORIDE
     Indication: PULMONARY TUBERCULOSIS
     Dosage: 15 MG/KG, BODY WEIGHT ON ALTERNATE DAYS
  6. ISONIAZID. [Suspect]
     Active Substance: ISONIAZID
     Dosage: 300 MG, QD
     Route: 065

REACTIONS (3)
  - Peripheral nerve injury [Recovered/Resolved]
  - Vocal cord paralysis [Recovered/Resolved]
  - Optic nerve injury [Recovering/Resolving]
